FAERS Safety Report 4775761-2 (Version None)
Quarter: 2005Q3

REPORT INFORMATION
  Report Type: 
  Country: None (occurrence: None)
  Receive Date: 20050922
  Receipt Date: 20030522
  Transmission Date: 20060218
  Serious: Yes (Death)
  Sender: FDA-Public Use
  Company Number: PHNR2003AU01765

PATIENT
  Age: 64 Year
  Sex: Female

DRUGS (1)
  1. NEORAL [Suspect]
     Indication: RENAL TRANSPLANT
     Dosage: 150 MG/DAY
     Route: 048
     Dates: start: 19970419, end: 20011001

REACTIONS (7)
  - LIP LESION EXCISION [None]
  - MALIGNANT TUMOUR EXCISION [None]
  - METASTASES TO LYMPH NODES [None]
  - METASTASIS [None]
  - METASTATIC SQUAMOUS CELL CARCINOMA [None]
  - NECK MASS [None]
  - SKIN CANCER [None]
